FAERS Safety Report 23178856 (Version 2)
Quarter: 2023Q4

REPORT INFORMATION
  Report Type: Spontaneous
  Country: JP (occurrence: JP)
  Receive Date: 20231113
  Receipt Date: 20231207
  Transmission Date: 20240110
  Serious: Yes (Hospitalization, Other)
  Sender: FDA-Public Use
  Company Number: JP-PFIZER INC-PV202300184098

PATIENT
  Age: 66 Year
  Sex: Female
  Weight: 44 kg

DRUGS (20)
  1. XELJANZ [Suspect]
     Active Substance: TOFACITINIB CITRATE
     Indication: Rheumatoid arthritis
     Dosage: 5 MG, 2X/DAY
     Route: 048
     Dates: start: 20151204, end: 20170510
  2. METHOTREXATE SODIUM [Suspect]
     Active Substance: METHOTREXATE SODIUM
     Dosage: 6 MG, WEEKLY
     Route: 048
     Dates: start: 20071221, end: 20080309
  3. METHOTREXATE SODIUM [Suspect]
     Active Substance: METHOTREXATE SODIUM
     Dosage: 8MG, WEEKLY
     Dates: start: 20080310, end: 20100209
  4. METHOTREXATE SODIUM [Suspect]
     Active Substance: METHOTREXATE SODIUM
     Dosage: 10MG, WEEKLY
     Dates: start: 20100210, end: 20100601
  5. METHOTREXATE SODIUM [Suspect]
     Active Substance: METHOTREXATE SODIUM
     Dosage: 8MG, WEEKLY
     Dates: start: 20100606, end: 20111116
  6. METHOTREXATE SODIUM [Suspect]
     Active Substance: METHOTREXATE SODIUM
     Dosage: 10MG, WEEKLY
     Dates: start: 20111117, end: 20120501
  7. METHOTREXATE SODIUM [Suspect]
     Active Substance: METHOTREXATE SODIUM
     Dosage: 10MG, WEEKLY
     Dates: start: 20121225, end: 20170403
  8. METHOTREXATE SODIUM [Suspect]
     Active Substance: METHOTREXATE SODIUM
     Dosage: 6 MG, WEEKLY
     Dates: start: 20170404, end: 20180726
  9. SIMPONI [Suspect]
     Active Substance: GOLIMUMAB
     Indication: Rheumatoid arthritis
     Dosage: 50 MG, ONCE IN 4WEEKS
     Route: 058
     Dates: start: 20091209, end: 20111020
  10. SIMPONI [Suspect]
     Active Substance: GOLIMUMAB
     Dosage: 100MG, ONCE IN 4WEEKS
     Route: 058
     Dates: start: 20111117, end: 20120724
  11. SIMPONI [Suspect]
     Active Substance: GOLIMUMAB
     Dosage: 100MG, ONCE IN 4WEEKS
     Route: 058
     Dates: start: 20121127, end: 20151028
  12. SIMPONI [Suspect]
     Active Substance: GOLIMUMAB
     Dosage: 100MG, ONCE IN 4WEEKS
     Route: 058
     Dates: start: 20170517, end: 20200427
  13. RABEPRAZOLE SODIUM [Concomitant]
     Active Substance: RABEPRAZOLE SODIUM
     Indication: Prophylaxis against gastrointestinal ulcer
     Dosage: 10 MG, DAILY
     Route: 048
     Dates: start: 200801, end: 20170822
  14. AZULFIDINE [Concomitant]
     Active Substance: SULFASALAZINE
     Indication: Rheumatoid arthritis
     Dosage: 500 MG, 2X/DAY
     Route: 048
     Dates: start: 201309, end: 20171121
  15. PREDNISOLONE [Concomitant]
     Active Substance: PREDNISOLONE
     Indication: Rheumatoid arthritis
     Dosage: 1 MG, DAILY
     Route: 048
     Dates: start: 20160802, end: 20170822
  16. LOXOPROFEN SODIUM [Concomitant]
     Active Substance: LOXOPROFEN SODIUM
     Indication: Rheumatoid arthritis
     Dosage: 60 MG, 2X/DAY
     Route: 048
     Dates: start: 20160628, end: 20170822
  17. ELDECALCITOL [Concomitant]
     Active Substance: ELDECALCITOL
     Indication: Osteoporosis
     Dosage: 0.5 UG, DAILY
     Route: 048
     Dates: start: 201206
  18. ALFACALCIDOL [Concomitant]
     Active Substance: ALFACALCIDOL
     Indication: Osteoporosis
     Dosage: 50 MG, MONTHLY
     Route: 048
     Dates: start: 201305
  19. FLUTICASONE PROPIONATE\FORMOTEROL FUMARATE [Concomitant]
     Active Substance: FLUTICASONE PROPIONATE\FORMOTEROL FUMARATE
     Dosage: UNK, AS NEEDED
     Route: 055
     Dates: start: 201601
  20. SPIRIVA RESPIMAT [Concomitant]
     Active Substance: TIOTROPIUM BROMIDE
     Dosage: UNK, AS NEEDED
     Route: 055
     Dates: start: 201601

REACTIONS (2)
  - Breast cancer [Recovering/Resolving]
  - Feeling abnormal [Recovered/Resolved]

NARRATIVE: CASE EVENT DATE: 20170401
